FAERS Safety Report 8891932 (Version 1)
Quarter: 2012Q4

REPORT INFORMATION
  Report Type: 
  Country: US (occurrence: US)
  Receive Date: 20121107
  Receipt Date: 20121107
  Transmission Date: 20130627
  Serious: No
  Sender: FDA-Public Use
  Company Number: US-AMGEN-USASP2011051367

PATIENT
  Age: 42 Year
  Sex: Female
  Weight: 65.76 kg

DRUGS (6)
  1. ENBREL [Suspect]
     Indication: PRODUCT USED FOR UNKNOWN INDICATION
     Dosage: 50 mg, qwk
     Route: 058
  2. DEXAMETHASON [Concomitant]
     Dosage: 4 mg, UNK
  3. ARAVA [Concomitant]
     Dosage: 10 mg, UNK
  4. GABAPENTIN [Concomitant]
     Dosage: 300 mg, UNK
  5. CALCIUM D [Concomitant]
  6. MULTIVITAMIN [Concomitant]

REACTIONS (1)
  - Headache [Unknown]
